FAERS Safety Report 8401275-4 (Version None)
Quarter: 2012Q2

REPORT INFORMATION
  Report Type: 
  Country: None (occurrence: None)
  Receive Date: 20120601
  Receipt Date: 20120522
  Transmission Date: 20120825
  Serious: Yes (Other)
  Sender: FDA-Public Use
  Company Number: JP-VERTEX PHARMACEUTICALS INC.-AE-2012-005292

PATIENT
  Age: 64 Year
  Sex: Male

DRUGS (8)
  1. REBETOL [Concomitant]
     Indication: HEPATITIS C
     Route: 048
     Dates: start: 20120224, end: 20120412
  2. PEG-INTRON [Concomitant]
     Indication: HEPATITIS C
     Route: 051
     Dates: start: 20120224, end: 20120302
  3. FAMOTIDINE [Concomitant]
     Route: 048
     Dates: start: 20120323
  4. TELAVIC (TELAPREVIR) [Suspect]
     Indication: HEPATITIS C
     Route: 048
     Dates: start: 20120224, end: 20120511
  5. PEG-INTRON [Concomitant]
     Route: 051
     Dates: start: 20120309
  6. SM OINTMENT [Concomitant]
     Route: 061
     Dates: start: 20120227
  7. REBETOL [Concomitant]
     Route: 048
     Dates: start: 20120413
  8. MUCOSTA [Concomitant]
     Route: 048
     Dates: start: 20120309, end: 20120322

REACTIONS (1)
  - PANCYTOPENIA [None]
